FAERS Safety Report 10512719 (Version 1)
Quarter: 2014Q4

REPORT INFORMATION
  Report Type: Spontaneous
  Country: MX (occurrence: MX)
  Receive Date: 20141012
  Receipt Date: 20141012
  Transmission Date: 20150528
  Serious: Yes (Other)
  Sender: FDA-Public Use
  Company Number: MX-BRISTOL-MYERS SQUIBB COMPANY-21479845

PATIENT
  Sex: Male

DRUGS (1)
  1. APIXABAN [Suspect]
     Active Substance: APIXABAN
     Indication: THROMBOPHLEBITIS

REACTIONS (1)
  - Henoch-Schonlein purpura [Unknown]
